FAERS Safety Report 4357830-4 (Version None)
Quarter: 2004Q2

REPORT INFORMATION
  Report Type: 
  Country: None (occurrence: None)
  Receive Date: 20040512
  Receipt Date: 20040428
  Transmission Date: 20050107
  Serious: Yes (Life-Threatening, Hospitalization)
  Sender: FDA-Public Use
  Company Number: US-JNJFOC-20040406324

PATIENT
  Sex: Male

DRUGS (4)
  1. REMICADE [Suspect]
     Indication: CROHN'S DISEASE
     Dosage: 5 MG/KG,
     Route: 042
  2. PREDNISONE [Concomitant]
  3. ASACOL [Concomitant]
  4. 6MP (MERCAPOTOPURINE) [Concomitant]

REACTIONS (1)
  - MENINGITIS TUBERCULOUS [None]
